FAERS Safety Report 6165825-3 (Version None)
Quarter: 2009Q2

REPORT INFORMATION
  Report Type: 
  Country: None (occurrence: None)
  Receive Date: 20090423
  Receipt Date: 20090417
  Transmission Date: 20091009
  Serious: Yes (Hospitalization)
  Sender: FDA-Public Use
  Company Number: US-GILEAD-2009-0021404

PATIENT
  Sex: Female

DRUGS (11)
  1. LETAIRIS [Suspect]
     Indication: PULMONARY ARTERIAL HYPERTENSION
     Route: 048
     Dates: start: 20090120, end: 20090330
  2. METOPROLOL TARTRATE [Concomitant]
  3. CRESTOR [Concomitant]
  4. LASIX [Concomitant]
  5. REVATIO [Concomitant]
  6. CYMBALTA [Concomitant]
  7. OMEPRAZOLE [Concomitant]
  8. REQUIP [Concomitant]
  9. K-DUR [Concomitant]
  10. MULTI VITAMIN- HERS [Concomitant]
  11. FLAX SEED OIL [Concomitant]

REACTIONS (1)
  - CARDIAC FAILURE CONGESTIVE [None]
